FAERS Safety Report 7824512-3 (Version None)
Quarter: 2011Q4

REPORT INFORMATION
  Report Type: 
  Country: None (occurrence: None)
  Receive Date: 20111019
  Receipt Date: 20111004
  Transmission Date: 20120403
  Serious: Yes (Death)
  Sender: FDA-Public Use
  Company Number: JP-EISAI INC-E3810-04957-SPO-JP

PATIENT
  Age: 81 Year
  Sex: Female

DRUGS (4)
  1. LEVOFLOXACIN [Suspect]
     Indication: VOMITING
     Route: 048
     Dates: start: 20091018
  2. RABEPRAZOLE SODIUM [Suspect]
     Route: 048
     Dates: start: 20091018
  3. CHINESE HERBAL MEDICINE [Concomitant]
     Indication: DELIRIUM
     Route: 048
     Dates: start: 20091018
  4. LEVOFLOXACIN [Suspect]
     Indication: DIARRHOEA

REACTIONS (1)
  - INTERSTITIAL LUNG DISEASE [None]
